FAERS Safety Report 23382980 (Version 1)
Quarter: 2024Q1

REPORT INFORMATION
  Report Type: Spontaneous
  Country: ES (occurrence: ES)
  Receive Date: 20240109
  Receipt Date: 20240109
  Transmission Date: 20240410
  Serious: Yes (Hospitalization)
  Sender: FDA-Public Use
  Company Number: None

PATIENT
  Age: 82 Year
  Sex: Female

DRUGS (3)
  1. DEXKETOPROFEN TROMETAMOL [Interacting]
     Active Substance: DEXKETOPROFEN TROMETAMOL
     Indication: Headache
     Dosage: 50 MILLIGRAM, QW
     Route: 048
     Dates: start: 20230908, end: 20231023
  2. ASPIRIN [Interacting]
     Active Substance: ASPIRIN
     Indication: Prophylaxis
     Dosage: 100 MILLIGRAM, QD
     Route: 048
     Dates: start: 20220401, end: 20231023
  3. IBUPROFEN [Interacting]
     Active Substance: IBUPROFEN
     Indication: Headache
     Dosage: 600 MILLIGRAM, BID
     Route: 048
     Dates: start: 20231008, end: 20231023

REACTIONS (2)
  - Subdural haematoma [Recovered/Resolved with Sequelae]
  - Drug interaction [Unknown]

NARRATIVE: CASE EVENT DATE: 20231023
